FAERS Safety Report 4718624-0 (Version None)
Quarter: 2005Q3

REPORT INFORMATION
  Report Type: 
  Country: None (occurrence: None)
  Receive Date: 20050720
  Receipt Date: 20050421
  Transmission Date: 20060218
  Serious: Yes (Disabling)
  Sender: FDA-Public Use
  Company Number: JP-GLAXOSMITHKLINE-B0378990A

PATIENT
  Age: 73 Year
  Sex: Female

DRUGS (7)
  1. ZEFIX [Suspect]
     Indication: HEPATIC CIRRHOSIS
     Dosage: 100MG PER DAY
     Route: 048
     Dates: start: 20041117
  2. ACINON [Concomitant]
     Indication: GASTRITIS
     Dosage: 150MG PER DAY
     Route: 048
     Dates: start: 20010409
  3. ALDACTONE [Concomitant]
     Indication: HEPATIC CIRRHOSIS
     Dosage: 50MG PER DAY
     Route: 048
     Dates: start: 20010409
  4. LASIX [Concomitant]
     Indication: HEPATIC CIRRHOSIS
     Dosage: 40MG PER DAY
     Route: 048
     Dates: start: 20010912
  5. AMINOLEBAN [Concomitant]
     Indication: HEPATIC CIRRHOSIS
     Dosage: 50G PER DAY
     Route: 048
     Dates: start: 20010409
  6. MONILAC [Concomitant]
     Route: 048
  7. MYSLEE [Concomitant]
     Indication: INSOMNIA
     Dosage: 5MG PER DAY
     Route: 048
     Dates: start: 20040621

REACTIONS (3)
  - BLOOD CREATININE INCREASED [None]
  - BLOOD POTASSIUM INCREASED [None]
  - RENAL FAILURE CHRONIC [None]
